FAERS Safety Report 9915589 (Version 1)
Quarter: 2014Q1

REPORT INFORMATION
  Report Type: Spontaneous
  Country: DE (occurrence: DE)
  Receive Date: 20140221
  Receipt Date: 20140221
  Transmission Date: 20141002
  Serious: Yes (Congenital Anomaly, Other)
  Sender: FDA-Public Use
  Company Number: DE-DRREDDYS-GER/GER/14/0038269

PATIENT
  Age: 1 Day
  Sex: Male
  Weight: 2.08 kg

DRUGS (5)
  1. SERTRALINE [Suspect]
     Indication: PRODUCT USED FOR UNKNOWN INDICATION
     Route: 064
     Dates: start: 20120407, end: 20121206
  2. LAMOTRIGINE [Suspect]
     Indication: PRODUCT USED FOR UNKNOWN INDICATION
     Dosage: HIGHER DOSE OF 200 MG/D SINCE WEEK 15
     Route: 064
     Dates: start: 20120407
  3. LAMOTRIGINE [Suspect]
     Route: 064
     Dates: end: 20121206
  4. L-THYROXIN HENNING [Concomitant]
     Indication: PRODUCT USED FOR UNKNOWN INDICATION
     Route: 064
     Dates: start: 20120407, end: 20121206
  5. CORDES BPO 5 [Concomitant]
     Indication: PRODUCT USED FOR UNKNOWN INDICATION
     Route: 064
     Dates: start: 20120407, end: 20120518

REACTIONS (3)
  - Polydactyly [Recovered/Resolved]
  - Premature baby [Unknown]
  - Foetal exposure during pregnancy [Unknown]
